FAERS Safety Report 23944475 (Version 1)
Quarter: 2024Q2

REPORT INFORMATION
  Report Type: Spontaneous
  Country: US (occurrence: US)
  Receive Date: 20240606
  Receipt Date: 20240606
  Transmission Date: 20240715
  Serious: Yes (Hospitalization, Other)
  Sender: FDA-Public Use
  Company Number: US-862174955-ML2024-03324

PATIENT
  Age: 50 Year
  Sex: Female

DRUGS (1)
  1. ISOPROTERENOL HYDROCHLORIDE [Suspect]
     Active Substance: ISOPROTERENOL HYDROCHLORIDE
     Indication: Atrial standstill
     Dosage: ISOPROTERENOL IV INFUSION
     Route: 042

REACTIONS (2)
  - Atrial fibrillation [Unknown]
  - Sinus tachycardia [Unknown]
